FAERS Safety Report 5335651-3 (Version None)
Quarter: 2007Q2

REPORT INFORMATION
  Report Type: 
  Country: None (occurrence: None)
  Receive Date: 20070322
  Receipt Date: 20061211
  Transmission Date: 20071010
  Serious: No
  Sender: FDA-Public Use
  Company Number: 2006US002864

PATIENT
  Age: 74 Year
  Sex: Male

DRUGS (5)
  1. VESICARE [Suspect]
     Indication: HYPERTONIC BLADDER
     Dosage: 10 MG, UNK, ORAL
     Route: 048
     Dates: start: 20061208, end: 20061209
  2. PROCARDIA [Concomitant]
  3. DOCUSATE (DOCUSATE) [Concomitant]
  4. HYDROCHLOROTHIAZIDE [Concomitant]
  5. ASPIRIN [Concomitant]

REACTIONS (1)
  - DYSPHAGIA [None]
